FAERS Safety Report 10062613 (Version 1)
Quarter: 2014Q2

REPORT INFORMATION
  Report Type: Spontaneous
  Country: IN (occurrence: IN)
  Receive Date: 20140407
  Receipt Date: 20140407
  Transmission Date: 20141212
  Serious: Yes (Hospitalization, Disabling, Other)
  Sender: FDA-Public Use
  Company Number: IN-WATSON-2014-06177

PATIENT
  Age: 31 Year
  Sex: Male

DRUGS (4)
  1. METRONIDAZOLE [Suspect]
     Indication: HEPATIC AMOEBIASIS
     Dosage: 400 MG, 5 TABLETS, DAILY
     Route: 048
  2. METRONIDAZOLE [Suspect]
     Indication: HEPATIC AMOEBIASIS
     Dosage: UNKNOWN
     Route: 042
  3. ORNIDAZOLE [Concomitant]
     Indication: DIARRHOEA
     Dosage: 250 MG, BID
     Route: 065
  4. DILOXANIDE FUROATE [Concomitant]
     Indication: DIARRHOEA
     Dosage: 200 MG, BID
     Route: 065

REACTIONS (4)
  - Cerebellar ataxia [Recovered/Resolved]
  - Generalised tonic-clonic seizure [Recovered/Resolved]
  - Neuropathy peripheral [Recovering/Resolving]
  - Incorrect drug administration duration [Unknown]
